FAERS Safety Report 6275551-8 (Version None)
Quarter: 2009Q3

REPORT INFORMATION
  Report Type: 
  Country: None (occurrence: None)
  Receive Date: 20090721
  Receipt Date: 20090709
  Transmission Date: 20100115
  Serious: Yes (Other)
  Sender: FDA-Public Use
  Company Number: CH-ELI_LILLY_AND_COMPANY-CH200907001903

PATIENT
  Age: 52 Year
  Sex: Female

DRUGS (1)
  1. FLUCTINE [Suspect]
     Indication: DEPRESSION
     Dosage: 20 MG, DAILY (1/D)
     Route: 048
     Dates: start: 20081227, end: 20090415

REACTIONS (1)
  - RESTLESS LEGS SYNDROME [None]
